FAERS Safety Report 6971543-1 (Version None)
Quarter: 2010Q3

REPORT INFORMATION
  Report Type: 
  Country: None (occurrence: None)
  Receive Date: 20100908
  Receipt Date: 20100827
  Transmission Date: 20110219
  Serious: Yes (Other)
  Sender: FDA-Public Use
  Company Number: US-WYE-H17207110

PATIENT
  Sex: Female

DRUGS (4)
  1. PRISTIQ [Suspect]
     Indication: DEPRESSION
     Route: 048
  2. PRISTIQ [Suspect]
     Indication: OBSESSIVE-COMPULSIVE DISORDER
  3. PRISTIQ [Suspect]
     Indication: ANXIETY
  4. ARIPIPRAZOLE [Concomitant]

REACTIONS (1)
  - OBESITY SURGERY [None]
